FAERS Safety Report 7744733-8 (Version None)
Quarter: 2011Q3

REPORT INFORMATION
  Report Type: 
  Country: None (occurrence: None)
  Receive Date: 20110912
  Receipt Date: 20110628
  Transmission Date: 20111222
  Serious: No
  Sender: FDA-Public Use
  Company Number: US-BAYER-2011-056003

PATIENT
  Age: 36 Year
  Sex: Female
  Weight: 126.98 kg

DRUGS (1)
  1. ULTRAVIST 150 [Suspect]
     Indication: COMPUTERISED TOMOGRAM ABDOMEN
     Dosage: 120 ML, UNK
     Route: 042
     Dates: start: 20110628

REACTIONS (2)
  - PRURITUS GENERALISED [None]
  - URTICARIA [None]
